FAERS Safety Report 25790796 (Version 1)
Quarter: 2025Q3

REPORT INFORMATION
  Report Type: Spontaneous
  Country: US (occurrence: None)
  Receive Date: 20250910
  Receipt Date: 20250910
  Transmission Date: 20251021
  Serious: Yes (Death)
  Sender: FDA-CTU
  Company Number: None

PATIENT
  Age: 61 Year
  Sex: Female

DRUGS (1)
  1. LENALIDOMIDE [Suspect]
     Active Substance: LENALIDOMIDE
     Indication: Marginal zone lymphoma
     Dosage: 20MG QD ORAL
     Route: 048
     Dates: start: 20250327, end: 20250517

REACTIONS (3)
  - Syncope [None]
  - Pneumonia [None]
  - General physical health deterioration [None]

NARRATIVE: CASE EVENT DATE: 20250517
